FAERS Safety Report 23874344 (Version 6)
Quarter: 2024Q4

REPORT INFORMATION
  Report Type: Spontaneous
  Country: US (occurrence: US)
  Receive Date: 20240520
  Receipt Date: 20241108
  Transmission Date: 20250115
  Serious: Yes (Other)
  Sender: CALLIDITAS THERAPEUTICS AB
  Company Number: US-Calliditas-2024CAL00721

PATIENT
  Age: 64 Year
  Sex: Male
  Weight: 86.2 kg

DRUGS (18)
  1. TARPEYO [Suspect]
     Active Substance: BUDESONIDE
     Indication: IgA nephropathy
     Route: 048
     Dates: start: 20240328, end: 20240704
  2. ACETAMINOPHEN [Concomitant]
     Active Substance: ACETAMINOPHEN
  3. CALCIUM CARBONATE [Concomitant]
     Active Substance: CALCIUM CARBONATE
  4. DAPSONE [Concomitant]
     Active Substance: DAPSONE
  5. LABETALOL [Concomitant]
     Active Substance: LABETALOL
  6. LORATADINE [Concomitant]
     Active Substance: LORATADINE
  7. PANTOPRAZOLE [Concomitant]
     Active Substance: PANTOPRAZOLE
  8. PREDNISONE [Concomitant]
     Active Substance: PREDNISONE
  9. TAMSULOSIN [Concomitant]
     Active Substance: TAMSULOSIN
  10. TORSEMIDE [Concomitant]
     Active Substance: TORSEMIDE
  11. TRIAMCINOLONE [Concomitant]
     Active Substance: TRIAMCINOLONE
  12. WARFARIN [Concomitant]
     Active Substance: WARFARIN
  13. VITAMIN D NOS [Concomitant]
     Active Substance: CHOLECALCIFEROL\ERGOCALCIFEROL
  14. TOREMIFENE [Concomitant]
     Active Substance: TOREMIFENE
  15. TRAZODONE [Concomitant]
     Active Substance: TRAZODONE HYDROCHLORIDE
  16. CALCITRIOL [Concomitant]
     Active Substance: CALCITRIOL
  17. COLCHICINE [Concomitant]
     Active Substance: COLCHICINE
  18. ELIQUIS [Concomitant]
     Active Substance: APIXABAN

REACTIONS (5)
  - Bacterial infection [Recovering/Resolving]
  - Pain [Unknown]
  - Clostridium difficile infection [Recovered/Resolved]
  - Gastrointestinal disorder [Unknown]
  - Product dose omission issue [Recovered/Resolved]

NARRATIVE: CASE EVENT DATE: 20240705
